FAERS Safety Report 21159391 (Version 2)
Quarter: 2024Q1

REPORT INFORMATION
  Report Type: Spontaneous
  Country: JP (occurrence: JP)
  Receive Date: 20220802
  Receipt Date: 20240322
  Transmission Date: 20240410
  Serious: Yes (Hospitalization, Other)
  Sender: FDA-Public Use
  Company Number: JP-ONO-2022JP020742

PATIENT
  Age: 64 Year
  Sex: Male
  Weight: 49.6 kg

DRUGS (3)
  1. OPDIVO [Suspect]
     Active Substance: NIVOLUMAB
     Indication: Head and neck cancer
     Dosage: 240 MG
     Route: 041
     Dates: start: 20220502, end: 20220530
  2. PACLITAXEL [Suspect]
     Active Substance: PACLITAXEL
     Indication: Product used for unknown indication
     Dates: start: 20220613
  3. PACLITAXEL [Suspect]
     Active Substance: PACLITAXEL
     Dates: start: 20220620

REACTIONS (5)
  - Fulminant type 1 diabetes mellitus [Recovered/Resolved with Sequelae]
  - Malignant neoplasm progression [Unknown]
  - Urine ketone body present [Unknown]
  - Metabolic acidosis [Unknown]
  - Diabetic ketoacidosis [Recovering/Resolving]

NARRATIVE: CASE EVENT DATE: 20220530
